FAERS Safety Report 9411904 (Version 2)
Quarter: 2013Q3

REPORT INFORMATION
  Report Type: Spontaneous
  Country: DE (occurrence: DE)
  Receive Date: 20130722
  Receipt Date: 20130822
  Transmission Date: 20140515
  Serious: Yes (Hospitalization, Congenital Anomaly)
  Sender: FDA-Public Use
  Company Number: PHHY2013DE076205

PATIENT
  Age: 1 Month
  Sex: Female

DRUGS (3)
  1. LEPONEX [Suspect]
     Indication: SCHIZOPHRENIA
     Dosage: 400 MG, QD (MATERRNAL EXPOSURE)
     Route: 064
     Dates: start: 20110514, end: 20120131
  2. LEPONEX [Suspect]
     Dosage: 300 MG, QD (MATERRNAL EXPOSURE)
     Route: 064
  3. FOLSAEURE [Concomitant]
     Indication: PROPHYLAXIS OF NEURAL TUBE DEFECT
     Dosage: UNK
     Route: 064
     Dates: start: 20110514

REACTIONS (1)
  - Congenital hydrocephalus [Recovered/Resolved with Sequelae]
